FAERS Safety Report 16405062 (Version 2)
Quarter: 2019Q3

REPORT INFORMATION
  Report Type: Spontaneous
  Country: US (occurrence: US)
  Receive Date: 20190607
  Receipt Date: 20190705
  Transmission Date: 20191004
  Serious: No
  Sender: FDA-Public Use
  Company Number: US-009507513-1906USA002198

PATIENT
  Age: 82 Year
  Sex: Male

DRUGS (1)
  1. PROVENTIL [Suspect]
     Active Substance: ALBUTEROL
     Indication: WHEEZING
     Dosage: ROUTE: INHALES, DOSE: AS NEEDED
     Route: 055

REACTIONS (7)
  - Product packaging quantity issue [Unknown]
  - Product quality issue [Unknown]
  - Wheezing [Unknown]
  - Poor quality device used [Unknown]
  - Initial insomnia [Unknown]
  - Product dose omission [Unknown]
  - Wrong technique in product usage process [Unknown]

NARRATIVE: CASE EVENT DATE: 20190603
